FAERS Safety Report 7829525-3 (Version None)
Quarter: 2011Q4

REPORT INFORMATION
  Report Type: 
  Country: None (occurrence: None)
  Receive Date: 20111020
  Receipt Date: 20111013
  Transmission Date: 20120403
  Serious: Yes (Hospitalization)
  Sender: FDA-Public Use
  Company Number: JP-MERCK-1110USA01309

PATIENT
  Age: 79 Year
  Sex: Male

DRUGS (5)
  1. PEPCID [Suspect]
     Route: 048
     Dates: end: 20111005
  2. TIZANIDINE HCL [Suspect]
     Route: 065
  3. TOUGHMAC E [Suspect]
     Route: 065
  4. MYONAL [Suspect]
     Route: 065
     Dates: end: 20111004
  5. CELECOXIB [Suspect]
     Route: 048
     Dates: start: 20110922, end: 20111004

REACTIONS (1)
  - HYPOGLYCAEMIA [None]
